FAERS Safety Report 4518841-9 (Version None)
Quarter: 2004Q4

REPORT INFORMATION
  Report Type: 
  Country: None (occurrence: None)
  Receive Date: 20041206
  Receipt Date: 20041123
  Transmission Date: 20050328
  Serious: Yes (Death, Disabling, Other)
  Sender: FDA-Public Use
  Company Number: NSADSS2002022915

PATIENT
  Sex: Male
  Weight: 88.91 kg

DRUGS (7)
  1. REMICADE [Suspect]
     Route: 041
  2. REMICADE [Suspect]
     Route: 041
  3. REMICADE [Suspect]
     Indication: CROHN'S DISEASE
     Route: 041
  4. 6-MP [Concomitant]
  5. PREDNISONE [Concomitant]
  6. QUESTRAN [Concomitant]
  7. MESALAMINE [Concomitant]
     Indication: CROHN'S DISEASE

REACTIONS (2)
  - SMALL CELL LUNG CANCER METASTATIC [None]
  - SMALL CELL LUNG CANCER STAGE UNSPECIFIED [None]
